FAERS Safety Report 16097676 (Version 1)
Quarter: 2019Q1

REPORT INFORMATION
  Report Type: Spontaneous
  Country: CA (occurrence: CA)
  Receive Date: 20190320
  Receipt Date: 20190320
  Transmission Date: 20190418
  Serious: Yes (Other)
  Sender: FDA-Public Use
  Company Number: CA-ASTRAZENECA-2019SE42060

PATIENT
  Sex: Female

DRUGS (1)
  1. BYDUREON [Suspect]
     Active Substance: EXENATIDE
     Route: 065

REACTIONS (9)
  - Chapped lips [Unknown]
  - Blood glucose increased [Unknown]
  - Stress [Unknown]
  - Therapy cessation [Unknown]
  - Product solubility abnormal [Unknown]
  - Product substitution issue [Unknown]
  - Injection site pain [Unknown]
  - Micturition urgency [Unknown]
  - Pollakiuria [Unknown]
